FAERS Safety Report 11469046 (Version 1)
Quarter: 2015Q3

REPORT INFORMATION
  Report Type: Spontaneous
  Country: FR (occurrence: FR)
  Receive Date: 20150908
  Receipt Date: 20150908
  Transmission Date: 20151125
  Serious: Yes (Other)
  Sender: FDA-Public Use
  Company Number: FR-PFIZER INC-2015289732

PATIENT
  Age: 4 Year
  Sex: Female

DRUGS (2)
  1. NIMESULIDE [Suspect]
     Active Substance: NIMESULIDE
     Indication: LARYNGITIS
     Dosage: 100 MG, SINGLE
     Route: 048
     Dates: start: 20150210, end: 20150210
  2. ADVIL [Suspect]
     Active Substance: IBUPROFEN
     Indication: LARYNGITIS
     Dosage: 1 DOSE FOR 17 KG, UNK
     Route: 048
     Dates: start: 20150210, end: 20150210

REACTIONS (4)
  - Medication error [Unknown]
  - Poisoning [Recovered/Resolved]
  - Abdominal pain [Recovered/Resolved]
  - Accidental overdose [Recovered/Resolved]

NARRATIVE: CASE EVENT DATE: 20150210
